FAERS Safety Report 7283867-1 (Version None)
Quarter: 2011Q1

REPORT INFORMATION
  Report Type: 
  Country: None (occurrence: None)
  Receive Date: 20110209
  Receipt Date: 20110202
  Transmission Date: 20110831
  Serious: Yes (Other)
  Sender: FDA-Public Use
  Company Number: JP-PFIZER INC-2011024392

PATIENT
  Age: 71 Year
  Sex: Female

DRUGS (4)
  1. FARMORUBICIN [Suspect]
     Indication: BREAST CANCER
     Dosage: UNK
  2. CYCLOPHOSPHAMIDE [Suspect]
     Indication: BREAST CANCER
     Dosage: UNK
  3. PACLITAXEL [Suspect]
     Indication: BREAST CANCER
     Dosage: WEEKLY
  4. FLUOROURACIL [Suspect]
     Indication: BREAST CANCER
     Dosage: UNK

REACTIONS (1)
  - PHLEBITIS SUPERFICIAL [None]
